FAERS Safety Report 5609411-X (Version None)
Quarter: 2008Q1

REPORT INFORMATION
  Report Type: 
  Country: None (occurrence: None)
  Receive Date: 20080131
  Receipt Date: 20080122
  Transmission Date: 20080703
  Serious: Yes (Death, Other)
  Sender: FDA-Public Use
  Company Number: US-KINGPHARMUSA00001-K200800105

PATIENT

DRUGS (5)
  1. AVINZA [Suspect]
     Route: 048
  2. METHADONE HCL [Suspect]
  3. ONDANSETRON [Suspect]
  4. DIAZEPAM [Suspect]
  5. ZOLPIDEM [Suspect]

REACTIONS (2)
  - CARDIO-RESPIRATORY ARREST [None]
  - COMPLETED SUICIDE [None]
